FAERS Safety Report 7943898-2 (Version None)
Quarter: 2011Q4

REPORT INFORMATION
  Report Type: 
  Country: None (occurrence: None)
  Receive Date: 20111128
  Receipt Date: 20111116
  Transmission Date: 20120403
  Serious: Yes (Other)
  Sender: FDA-Public Use
  Company Number: HR-ROCHE-1016286

PATIENT
  Age: 65 Year
  Sex: Female

DRUGS (3)
  1. ALTEPLASE [Suspect]
     Indication: INTRAVENTRICULAR HAEMORRHAGE
  2. MIDAZOLAM [Concomitant]
     Indication: SEDATIVE THERAPY
  3. SUFENTANYL [Concomitant]
     Indication: SEDATIVE THERAPY

REACTIONS (1)
  - INTRACRANIAL PRESSURE INCREASED [None]
